FAERS Safety Report 5160896-5 (Version None)
Quarter: 2006Q4

REPORT INFORMATION
  Report Type: 
  Country: None (occurrence: None)
  Receive Date: 20061130
  Receipt Date: 20061115
  Transmission Date: 20070319
  Serious: Yes (Hospitalization)
  Sender: FDA-Public Use
  Company Number: US-JNJFOC-20061105857

PATIENT
  Age: 5 Year
  Sex: Female

DRUGS (3)
  1. ACETAMINOPHEN [Suspect]
  2. ACETAMINOPHEN [Suspect]
     Indication: DRUG USE FOR UNKNOWN INDICATION
  3. TRIAMINIC SRT [Suspect]
     Indication: DRUG USE FOR UNKNOWN INDICATION

REACTIONS (4)
  - DRUG ADMINISTRATION ERROR [None]
  - DRUG TOXICITY [None]
  - ENCEPHALOPATHY [None]
  - HEPATOTOXICITY [None]
